FAERS Safety Report 8430588-5 (Version None)
Quarter: 2012Q2

REPORT INFORMATION
  Report Type: 
  Country: None (occurrence: None)
  Receive Date: 20120612
  Receipt Date: 20120528
  Transmission Date: 20120825
  Serious: Yes (Other)
  Sender: FDA-Public Use
  Company Number: IT-GLAXOSMITHKLINE-B0807462A

PATIENT
  Sex: Female

DRUGS (2)
  1. XELODA [Concomitant]
     Indication: BREAST CANCER
     Dosage: 3300MG PER DAY
     Dates: start: 20120401, end: 20120408
  2. LAPATINIB [Suspect]
     Indication: BREAST CANCER
     Dosage: 1250MG PER DAY
     Route: 065
     Dates: start: 20120401, end: 20120508

REACTIONS (1)
  - SKIN TOXICITY [None]
